FAERS Safety Report 13317726 (Version 8)
Quarter: 2020Q1

REPORT INFORMATION
  Report Type: Spontaneous
  Country: US (occurrence: US)
  Receive Date: 20170310
  Receipt Date: 20200325
  Transmission Date: 20200409
  Serious: No
  Sender: FDA-Public Use
  Company Number: US-PFIZER INC-2016533960

PATIENT
  Age: 52 Year
  Sex: Female

DRUGS (39)
  1. LISINOPRIL AND HYDROCHLOROTHIAZIDE [Concomitant]
     Active Substance: HYDROCHLOROTHIAZIDE\LISINOPRIL
     Dosage: 1 DF DAILY (20 12.5)
     Route: 048
  2. VITAMIN D3 [Concomitant]
     Active Substance: CHOLECALCIFEROL
     Dosage: 50000 IU, UNK
     Route: 048
  3. LYRICA [Suspect]
     Active Substance: PREGABALIN
     Indication: NEW DAILY PERSISTENT HEADACHE
  4. LYRICA [Suspect]
     Active Substance: PREGABALIN
     Indication: COGNITIVE DISORDER
  5. MOBIC [Concomitant]
     Active Substance: MELOXICAM
     Dosage: 15 MG DAILY (1 TABLET EVERY DAY)
     Route: 048
  6. LISINOPRIL AND HYDROCHLOROTHIAZIDE [Concomitant]
     Active Substance: HYDROCHLOROTHIAZIDE\LISINOPRIL
     Dosage: 1 DF 1X DAY (20 12.5)
     Route: 048
  7. FISH OIL [Concomitant]
     Active Substance: FISH OIL
     Dosage: 2400 MG 1X DAY
     Route: 048
  8. VITAMIN D3 [Concomitant]
     Active Substance: CHOLECALCIFEROL
     Dosage: 5000 IU, UNK
     Route: 048
  9. LYRICA [Suspect]
     Active Substance: PREGABALIN
     Indication: HYPERREFLEXIA
  10. LYRICA [Suspect]
     Active Substance: PREGABALIN
     Indication: LUMBAR SPINAL STENOSIS
  11. TRAMADOL HCL [Concomitant]
     Active Substance: TRAMADOL HYDROCHLORIDE
     Dosage: 50 MG, AS NEEDED (EVERY 6 HRS)
     Route: 048
  12. NIFEDIPINE. [Concomitant]
     Active Substance: NIFEDIPINE
     Dosage: 60 MG, 1X DAY
     Route: 048
  13. LACTULOSE. [Concomitant]
     Active Substance: LACTULOSE
     Dosage: 15 ML, AS NEEDED (ONCE A DAY)
     Dates: end: 20160812
  14. LYRICA [Suspect]
     Active Substance: PREGABALIN
     Indication: LUMBAR SPINAL STENOSIS
     Dosage: 300 MG 2X DAY (1 CAPSULE TWICE A DAY 5 DAYS)
     Route: 048
  15. LYRICA [Suspect]
     Active Substance: PREGABALIN
     Indication: MYALGIA
  16. LYRICA [Suspect]
     Active Substance: PREGABALIN
     Indication: TRIGEMINAL NEURALGIA
  17. LYRICA [Suspect]
     Active Substance: PREGABALIN
     Indication: SPONDYLOLISTHESIS
  18. TRAMADOL HCL [Concomitant]
     Active Substance: TRAMADOL HYDROCHLORIDE
     Dosage: 50 MG, DAILY
     Route: 048
  19. VITAMIN B12 [Concomitant]
     Active Substance: CYANOCOBALAMIN
     Dosage: 1000 UG 1X DAY
     Route: 048
  20. LYRICA [Suspect]
     Active Substance: PREGABALIN
     Indication: NEUROPATHY PERIPHERAL
     Dosage: 150 MG, 2X/DAY
  21. LYRICA [Suspect]
     Active Substance: PREGABALIN
     Indication: BACK PAIN
  22. LYRICA [Suspect]
     Active Substance: PREGABALIN
     Indication: SYNCOPE
  23. MOBIC [Concomitant]
     Active Substance: MELOXICAM
     Dosage: 15 MG, 1X/DAY (ONE TABLET ONE TIME DAILY)
     Route: 048
  24. MELOXICAM. [Concomitant]
     Active Substance: MELOXICAM
     Dosage: 15 MG, AS NEEDED
     Route: 048
  25. AMITRIPTYLINE HCL [Concomitant]
     Active Substance: AMITRIPTYLINE
     Indication: MENTAL DISORDER
     Dosage: 100 MG, 1X/DAY (AT BEDTIME)
     Route: 048
  26. LISINOPRIL. [Concomitant]
     Active Substance: LISINOPRIL
     Dosage: 20 MG, UNK (TK 1 T D )
     Route: 048
  27. FISH OIL [Concomitant]
     Active Substance: FISH OIL
     Dosage: 2400 MG, 1X/DAY (DOUBLE STRENGTH, 2 CAPSULE ORALLY ONCE A DAY)
  28. AMITRIPTYLINE HCL [Concomitant]
     Active Substance: AMITRIPTYLINE
     Indication: NEUROPATHY PERIPHERAL
     Dosage: 150 MG 1X DAY (AT BEDTIME)
     Route: 048
  29. LYRICA [Suspect]
     Active Substance: PREGABALIN
     Indication: POLYNEUROPATHY IDIOPATHIC PROGRESSIVE
     Dosage: 300 MG 2X DAY (1 CAPSULE 2 TIMES A DAY)
     Route: 048
     Dates: start: 20140613
  30. LYRICA [Suspect]
     Active Substance: PREGABALIN
     Indication: ARTHRALGIA
  31. LYRICA [Suspect]
     Active Substance: PREGABALIN
     Indication: INTERVERTEBRAL DISC DISPLACEMENT
  32. OXYCODONE HYDROCHLORIDE. [Concomitant]
     Active Substance: OXYCODONE HYDROCHLORIDE
     Dosage: 5 MG, EVERY 4 HRS (1 TABLET AS NEEDED)
     Route: 048
     Dates: start: 20190107
  33. LYRICA [Suspect]
     Active Substance: PREGABALIN
     Indication: TENDONITIS
  34. LYRICA [Suspect]
     Active Substance: PREGABALIN
     Indication: OSTEONECROSIS
  35. LYRICA [Suspect]
     Active Substance: PREGABALIN
     Indication: LUMBAR SPINAL STENOSIS
  36. NORTRIPTYLINE HYDROCHLORIDE. [Concomitant]
     Active Substance: NORTRIPTYLINE HYDROCHLORIDE
     Dosage: 50 MG, 1X/DAY (SIG: 3 CAPSULES Q (EVERY DAY) HS (AT BEDTIME) ORALLY 90 DAYS)
     Route: 048
  37. LIDOCAINE. [Concomitant]
     Active Substance: LIDOCAINE
     Dosage: UNK (LIDOCAINE 5 PATCH; APPLY 1 PATCH DAILY FOR 12 HOURS AND LEAVE OFF FOR 12 HOURS)
  38. CELEBREX [Concomitant]
     Active Substance: CELECOXIB
     Dosage: 200 MG, 1X/DAY (1 CAPSULE WITH FOOD ONCE A DAY )
     Route: 048
  39. RED YEAST RICE [Concomitant]
     Active Substance: DIETARY SUPPLEMENT
     Dosage: 600 MG, UNK
     Route: 048

REACTIONS (2)
  - Epistaxis [Not Recovered/Not Resolved]
  - Visual impairment [Unknown]
